FAERS Safety Report 15838562 (Version 1)
Quarter: 2019Q1

REPORT INFORMATION
  Report Type: Spontaneous
  Country: US (occurrence: US)
  Receive Date: 20190117
  Receipt Date: 20190117
  Transmission Date: 20190417
  Serious: Yes (Hospitalization, Other)
  Sender: FDA-Public Use
  Company Number: US-PFIZER INC-2019021707

PATIENT
  Age: 64 Year
  Sex: Female
  Weight: 64.41 kg

DRUGS (2)
  1. LYRICA [Suspect]
     Active Substance: PREGABALIN
     Indication: FIBROMYALGIA
     Dosage: 75 MG, 2X/DAY
     Route: 048
     Dates: start: 2018
  2. LISINOPRIL. [Suspect]
     Active Substance: LISINOPRIL
     Indication: HYPERTENSION
     Dosage: 10 MG, DAILY
     Route: 048
     Dates: start: 2009

REACTIONS (10)
  - Loss of consciousness [Recovered/Resolved with Sequelae]
  - Hypotension [Not Recovered/Not Resolved]
  - Dizziness [Unknown]
  - Symptom recurrence [Unknown]
  - Abdominal discomfort [Unknown]
  - Malaise [Unknown]
  - Fall [Unknown]
  - Diarrhoea [Unknown]
  - Upper limb fracture [Unknown]
  - Nausea [Unknown]

NARRATIVE: CASE EVENT DATE: 201901
